FAERS Safety Report 7306775-6 (Version None)
Quarter: 2011Q1

REPORT INFORMATION
  Report Type: 
  Country: None (occurrence: None)
  Receive Date: 20110222
  Receipt Date: 20090806
  Transmission Date: 20110831
  Serious: Yes (Other)
  Sender: FDA-Public Use
  Company Number: US-BAYER-200838822NA

PATIENT
  Sex: Female
  Weight: 52 kg

DRUGS (10)
  1. OPTIMARK [Suspect]
     Indication: ANGIOGRAM
  2. MAGNEVIST [Suspect]
     Indication: NUCLEAR MAGNETIC RESONANCE IMAGING
  3. MAGNEVIST [Suspect]
     Indication: ANGIOGRAM
  4. OPTIMARK [Suspect]
     Indication: NUCLEAR MAGNETIC RESONANCE IMAGING
  5. OMNISCAN [Suspect]
     Indication: ANGIOGRAM
  6. MULTIHANCE [Suspect]
     Indication: ANGIOGRAM
  7. PROHANCE [Suspect]
     Indication: NUCLEAR MAGNETIC RESONANCE IMAGING
  8. MULTIHANCE [Suspect]
     Indication: NUCLEAR MAGNETIC RESONANCE IMAGING
  9. PROHANCE [Suspect]
     Indication: ANGIOGRAM
  10. OMNISCAN [Suspect]
     Indication: NUCLEAR MAGNETIC RESONANCE IMAGING
     Dosage: 40 ML, ONCE
     Dates: start: 20050512, end: 20050512

REACTIONS (20)
  - NEPHROGENIC SYSTEMIC FIBROSIS [None]
  - PAIN [None]
  - SKIN TIGHTNESS [None]
  - SKIN HYPERPIGMENTATION [None]
  - JOINT STIFFNESS [None]
  - DEPRESSION [None]
  - FIBROSIS [None]
  - EMOTIONAL DISTRESS [None]
  - OEDEMA PERIPHERAL [None]
  - ABASIA [None]
  - MYOSCLEROSIS [None]
  - SKIN FIBROSIS [None]
  - JOINT SWELLING [None]
  - ANXIETY [None]
  - QUALITY OF LIFE DECREASED [None]
  - JOINT CONTRACTURE [None]
  - SKIN INDURATION [None]
  - GENERAL PHYSICAL HEALTH DETERIORATION [None]
  - ARTHRALGIA [None]
  - SKIN HYPERTROPHY [None]
